FAERS Safety Report 23234969 (Version 1)
Quarter: 2023Q4

REPORT INFORMATION
  Report Type: Spontaneous
  Country: US (occurrence: None)
  Receive Date: 20231127
  Receipt Date: 20231127
  Transmission Date: 20240109
  Serious: Yes (Hospitalization, Disabling)
  Sender: FDA-Public Use
  Company Number: None

PATIENT
  Sex: Male

DRUGS (1)
  1. OPDIVO [Suspect]
     Active Substance: NIVOLUMAB
     Indication: Renal cell carcinoma
     Dates: start: 20220601, end: 20230630

REACTIONS (6)
  - Rash [None]
  - Oedema [None]
  - Blister [None]
  - Weight decreased [None]
  - Facial paralysis [None]
  - Asthenia [None]
